FAERS Safety Report 5245856-8 (Version None)
Quarter: 2007Q1

REPORT INFORMATION
  Report Type: 
  Country: None (occurrence: None)
  Receive Date: 20070216
  Receipt Date: 20070131
  Transmission Date: 20070707
  Serious: Yes (Hospitalization)
  Sender: FDA-Public Use
  Company Number: 2007000103

PATIENT
  Age: 52 Year
  Sex: Male
  Weight: 99.8 kg

DRUGS (8)
  1. ERLOTINIB (TABLET) [Suspect]
     Indication: NEOPLASM MALIGNANT
     Dosage: 150 MG (QD), ORAL
     Route: 048
     Dates: start: 20061219
  2. BEVACIZUMAB (INJECTION FOR INFUSION) [Suspect]
     Indication: NEOPLASM MALIGNANT
     Dosage: 15 MG/KG (Q3W), INTRAVENOUS
     Route: 042
     Dates: start: 20061219, end: 20061219
  3. CARBOPLATIN [Suspect]
     Indication: NEOPLASM MALIGNANT
     Dosage: 6 AUC (Q3W), INTRAVENOUS
     Route: 042
  4. PACLITAXEL [Suspect]
     Indication: NEOPLASM MALIGNANT
     Dosage: 175 MG/M2 (Q3W), INTRAVENOUS
     Route: 042
     Dates: start: 20061219, end: 20061219
  5. ALBUTEROL [Concomitant]
  6. CELEXA [Concomitant]
  7. SEROQUEL [Concomitant]
  8. PEPCID [Concomitant]

REACTIONS (4)
  - CHILLS [None]
  - FEBRILE NEUTROPENIA [None]
  - PAIN [None]
  - WHITE BLOOD CELL COUNT DECREASED [None]
